FAERS Safety Report 8301787-8 (Version None)
Quarter: 2012Q2

REPORT INFORMATION
  Report Type: 
  Country: None (occurrence: None)
  Receive Date: 20120417
  Receipt Date: 20120404
  Transmission Date: 20120825
  Serious: Yes (Life-Threatening, Hospitalization)
  Sender: FDA-Public Use
  Company Number: GER/GER/12/0023871

PATIENT
  Age: 79 Year
  Weight: 80 kg

DRUGS (5)
  1. XIAPAMIDE (XIPAMIDE) [Concomitant]
  2. TERAZOSIN HCL [Concomitant]
  3. FINASTERIDE [Suspect]
     Indication: BENIGN PROSTATIC HYPERPLASIA
     Dosage: 5 MG, 1 IN 1 D, ORAL
     Route: 048
     Dates: start: 20101101, end: 20110201
  4. MARCUMAR [Concomitant]
  5. LISIDOC (LISINOPRIL) [Concomitant]

REACTIONS (2)
  - THROMBOCYTOPENIA [None]
  - HAEMORRHAGIC DIATHESIS [None]
